FAERS Safety Report 12875893 (Version 1)
Quarter: 2016Q4

REPORT INFORMATION
  Report Type: Spontaneous
  Country: US (occurrence: US)
  Receive Date: 20161024
  Receipt Date: 20161024
  Transmission Date: 20170207
  Serious: No
  Sender: FDA-Public Use
  Company Number: US-JAZZ-2016-US-014995

PATIENT
  Age: 47 Year
  Sex: Female
  Weight: 64.85 kg

DRUGS (12)
  1. XYREM [Suspect]
     Active Substance: SODIUM OXYBATE
     Indication: NARCOLEPSY
     Dosage: 2.25 G, BID
     Route: 048
     Dates: start: 20160712, end: 201607
  2. XYREM [Suspect]
     Active Substance: SODIUM OXYBATE
     Dosage: 4.5 G, BID
     Route: 048
     Dates: start: 201608
  3. ADDERALL [Concomitant]
     Active Substance: AMPHETAMINE ASPARTATE\AMPHETAMINE SULFATE\DEXTROAMPHETAMINE SACCHARATE\DEXTROAMPHETAMINE SULFATE
  4. TOPIRAMATE. [Concomitant]
     Active Substance: TOPIRAMATE
  5. HUMALOG [Concomitant]
     Active Substance: INSULIN LISPRO
  6. NUVIGIL [Concomitant]
     Active Substance: ARMODAFINIL
  7. RIZATRIPTAN. [Concomitant]
     Active Substance: RIZATRIPTAN
  8. XANAX [Concomitant]
     Active Substance: ALPRAZOLAM
  9. XYREM [Suspect]
     Active Substance: SODIUM OXYBATE
     Indication: CATAPLEXY
     Dosage: DOSE ADJUSTMENTS
     Route: 048
     Dates: start: 201607, end: 201608
  10. AUGMENTIN [Concomitant]
     Active Substance: AMOXICILLIN\CLAVULANATE POTASSIUM
  11. NYSTATIN. [Concomitant]
     Active Substance: NYSTATIN
  12. LYRICA [Concomitant]
     Active Substance: PREGABALIN

REACTIONS (4)
  - Eye discharge [Recovering/Resolving]
  - Sinusitis [Recovering/Resolving]
  - Ocular hyperaemia [Recovering/Resolving]
  - Candida infection [Recovering/Resolving]

NARRATIVE: CASE EVENT DATE: 20160731
